FAERS Safety Report 8991763 (Version 2)
Quarter: 2013Q1

REPORT INFORMATION
  Report Type: Report from Study
  Country: CA (occurrence: CA)
  Receive Date: 20121231
  Receipt Date: 20130105
  Transmission Date: 20140127
  Serious: Yes (Other)
  Sender: FDA-Public Use
  Company Number: CA-JNJFOC-20121210819

PATIENT
  Age: 23 Year
  Sex: Female
  Weight: 58 kg

DRUGS (1)
  1. STELARA [Suspect]
     Indication: CROHN^S DISEASE
     Dates: start: 20120921

REACTIONS (2)
  - Small intestine operation [Unknown]
  - Abdominal pain [Recovered/Resolved]
